FAERS Safety Report 12991136 (Version 1)
Quarter: 2016Q4

REPORT INFORMATION
  Report Type: Spontaneous
  Country: US (occurrence: US)
  Receive Date: 20161201
  Receipt Date: 20161201
  Transmission Date: 20170207
  Serious: Yes (Life-Threatening, Hospitalization, Disabling, Other)
  Sender: FDA-Public Use
  Company Number: None

PATIENT
  Age: 87 Year
  Sex: Male

DRUGS (13)
  1. ATIVAN [Suspect]
     Active Substance: LORAZEPAM
     Indication: PAIN
     Dates: start: 20161113
  2. ATIVAN [Suspect]
     Active Substance: LORAZEPAM
  3. MORPHINE [Suspect]
     Active Substance: MORPHINE
     Indication: PAIN
     Dates: start: 20161113
  4. MORPHINE [Suspect]
     Active Substance: MORPHINE
     Indication: HEART RATE IRREGULAR
     Dates: start: 20161113
  5. ROXANOL [Concomitant]
     Active Substance: MORPHINE SULFATE
  6. RISPERDAL [Suspect]
     Active Substance: RISPERIDONE
     Indication: DEMENTIA
     Dosage: ?          OTHER FREQUENCY:HOURLY;?
     Route: 048
  7. ZOFRAN [Concomitant]
     Active Substance: ONDANSETRON HYDROCHLORIDE
  8. KEFLEX [Concomitant]
     Active Substance: CEPHALEXIN
  9. CLARITIN [Concomitant]
     Active Substance: LORATADINE
  10. ATIVAN [Suspect]
     Active Substance: LORAZEPAM
     Indication: HEART RATE IRREGULAR
     Dates: start: 20161113
  11. COUMADIN [Concomitant]
     Active Substance: WARFARIN SODIUM
  12. ACEMETOPHINE [Concomitant]
  13. NORVASC [Concomitant]
     Active Substance: AMLODIPINE BESYLATE

REACTIONS (2)
  - Contraindication to medical treatment [None]
  - Poisoning [None]

NARRATIVE: CASE EVENT DATE: 20161113
